FAERS Safety Report 9365387 (Version 2)
Quarter: 2014Q4

REPORT INFORMATION
  Report Type: Report from Study
  Country: US (occurrence: US)
  Receive Date: 20130625
  Receipt Date: 20141203
  Transmission Date: 20150529
  Serious: Yes (Other)
  Sender: FDA-Public Use
  Company Number: US-ROCHE-1240449

PATIENT

DRUGS (2)
  1. CAPECITABINE. [Suspect]
     Active Substance: CAPECITABINE
     Indication: NEOPLASM
     Dosage: TWICE DAILY FOR DAYS 1-14 OF 21-DAY CYCLES
     Route: 065
  2. AUY922 [Suspect]
     Active Substance: AUY922
     Indication: NEOPLASM
     Route: 042

REACTIONS (7)
  - Rash [Unknown]
  - Palmar-plantar erythrodysaesthesia syndrome [Unknown]
  - Fatigue [Unknown]
  - Neutropenia [Unknown]
  - Bone marrow failure [Unknown]
  - Diarrhoea [Unknown]
  - Decreased appetite [Unknown]
